FAERS Safety Report 9071164 (Version 5)
Quarter: 2013Q2

REPORT INFORMATION
  Report Type: Spontaneous
  Country: US (occurrence: US)
  Receive Date: 20130129
  Receipt Date: 20130626
  Transmission Date: 20140414
  Serious: Yes (Hospitalization, Other)
  Sender: FDA-Public Use
  Company Number: US-009507513-1301USA010204

PATIENT
  Sex: Female
  Weight: 65.99 kg

DRUGS (1)
  1. NUVARING [Suspect]
     Indication: CONTRACEPTION
     Dosage: UNK
     Route: 067
     Dates: start: 20080315, end: 20110119

REACTIONS (43)
  - Syncope [Unknown]
  - Pulmonary embolism [Unknown]
  - Respiratory failure [Unknown]
  - Cardiogenic shock [Unknown]
  - Dilatation ventricular [Unknown]
  - Systolic dysfunction [Unknown]
  - Epistaxis [Not Recovered/Not Resolved]
  - Hypotension [Unknown]
  - International normalised ratio increased [Unknown]
  - Toxicity to various agents [Unknown]
  - Upper gastrointestinal haemorrhage [Unknown]
  - Gastrointestinal vascular malformation [Unknown]
  - Arterial haemorrhage [Unknown]
  - Nasal disorder [Unknown]
  - Nasal disorder [Unknown]
  - Nose deformity [Unknown]
  - Nasal disorder [Unknown]
  - Nasal disorder [Unknown]
  - Nasal septal operation [Unknown]
  - Vena cava filter insertion [Unknown]
  - Type 2 diabetes mellitus [Unknown]
  - Gastrooesophageal reflux disease [Unknown]
  - Depression [Unknown]
  - Toe operation [Unknown]
  - Cardiac disorder [Unknown]
  - Lactic acidosis [Unknown]
  - Cardiac arrest [Unknown]
  - Metabolic acidosis [Unknown]
  - Staphylococcus test positive [Unknown]
  - Thrombocytopenia [Recovered/Resolved]
  - Urinary tract infection [Unknown]
  - Gastroenteritis Escherichia coli [Unknown]
  - Fluid overload [Unknown]
  - Pneumonia staphylococcal [Unknown]
  - Haemorrhagic anaemia [Unknown]
  - Vomiting [Unknown]
  - Sinus tachycardia [Unknown]
  - Pulmonary embolism [Unknown]
  - Coagulopathy [Unknown]
  - Nasal turbinate hypertrophy [Recovered/Resolved]
  - Nasal septum deviation [Recovered/Resolved]
  - Nasal septal operation [Not Recovered/Not Resolved]
  - Fungal skin infection [Unknown]
